FAERS Safety Report 15618997 (Version 2)
Quarter: 2018Q4

REPORT INFORMATION
  Report Type: Spontaneous
  Country: AU (occurrence: AU)
  Receive Date: 20181114
  Receipt Date: 20181116
  Transmission Date: 20190205
  Serious: Yes (Other)
  Sender: FDA-Public Use
  Company Number: AU-009507513-1803AUS006737

PATIENT

DRUGS (1)
  1. PEMBROLIZUMAB. [Suspect]
     Active Substance: PEMBROLIZUMAB
     Indication: MESOTHELIOMA

REACTIONS (10)
  - Arthralgia [Unknown]
  - Polymyalgia rheumatica [Unknown]
  - Rash [Unknown]
  - Dyspnoea [Unknown]
  - Fatigue [Unknown]
  - Pneumonitis [Unknown]
  - Diarrhoea [Unknown]
  - Colitis [Unknown]
  - Pyrexia [Unknown]
  - Hypothyroidism [Unknown]
